FAERS Safety Report 7579648-1 (Version None)
Quarter: 2011Q2

REPORT INFORMATION
  Report Type: 
  Country: None (occurrence: None)
  Receive Date: 20110629
  Receipt Date: 20110615
  Transmission Date: 20111010
  Serious: Yes (Other)
  Sender: FDA-Public Use
  Company Number: US-JNJFOC-20110607680

PATIENT
  Sex: Female
  Weight: 68.04 kg

DRUGS (1)
  1. REMICADE [Suspect]
     Indication: CROHN'S DISEASE
     Route: 042
     Dates: start: 20100101

REACTIONS (9)
  - HYPOTENSION [None]
  - RASH GENERALISED [None]
  - PSORIASIS [None]
  - OROPHARYNGEAL PAIN [None]
  - ECZEMA [None]
  - SKIN ULCER [None]
  - LYMPHADENOPATHY [None]
  - COUGH [None]
  - HYPERTENSION [None]
